FAERS Safety Report 18341248 (Version 1)
Quarter: 2020Q4

REPORT INFORMATION
  Report Type: Spontaneous
  Country: GB (occurrence: GB)
  Receive Date: 20201003
  Receipt Date: 20201003
  Transmission Date: 20210113
  Serious: Yes (Other)
  Sender: FDA-Public Use
  Company Number: GB-TEVA-2020-GB-1834415

PATIENT
  Age: 82 Year
  Sex: Female
  Weight: 71.66 kg

DRUGS (4)
  1. MACROBID [Suspect]
     Active Substance: NITROFURANTOIN\NITROFURANTOIN MONOHYDRATE
     Indication: URINARY TRACT INFECTION
     Dosage: 400 MILLIGRAM DAILY; 1 AT 5PM AND 1 AT 11PM
     Route: 048
     Dates: start: 20200828, end: 20200829
  2. LUMIGAN [Concomitant]
     Active Substance: BIMATOPROST
  3. FLUCONAZOLE. [Suspect]
     Active Substance: FLUCONAZOLE
     Indication: VULVOVAGINAL CANDIDIASIS
     Dosage: AS A ONE OFF DOSE
     Route: 048
     Dates: start: 20200829, end: 20200829
  4. VITAMIN B12 [Concomitant]
     Active Substance: CYANOCOBALAMIN

REACTIONS (4)
  - Nausea [Recovered/Resolved]
  - Asthenia [Recovered/Resolved]
  - Pyrexia [Recovered/Resolved]
  - Headache [Recovered/Resolved]

NARRATIVE: CASE EVENT DATE: 20200829
